FAERS Safety Report 23342229 (Version 1)
Quarter: 2023Q4

REPORT INFORMATION
  Report Type: Spontaneous
  Country: None (occurrence: FR)
  Receive Date: 20231227
  Receipt Date: 20231227
  Transmission Date: 20240109
  Serious: Yes (Hospitalization)
  Sender: FDA-Public Use
  Company Number: FR-B.Braun Medical Inc.-2149819

PATIENT
  Age: 33 Year
  Sex: Male

DRUGS (9)
  1. ACETAMINOPHEN [Suspect]
     Active Substance: ACETAMINOPHEN
     Indication: Pain
  2. TRAMADOL HYDROCHLORIDE [Suspect]
     Active Substance: TRAMADOL HYDROCHLORIDE
  3. CYTARABINE [Suspect]
     Active Substance: CYTARABINE
  4. DAUNORUBICIN [Suspect]
     Active Substance: DAUNORUBICIN
  5. FASTURTEC [Suspect]
     Active Substance: RASBURICASE
  6. METOCLOPRAMIDE [Suspect]
     Active Substance: METOCLOPRAMIDE
  7. ONDANSETRON [Suspect]
     Active Substance: ONDANSETRON
  8. POSACONAZOLE [Suspect]
     Active Substance: POSACONAZOLE
  9. VALACYCLOVIR HYDROCHLORIDE [Suspect]
     Active Substance: VALACYCLOVIR HYDROCHLORIDE

REACTIONS (1)
  - Methaemoglobinaemia [None]
